FAERS Safety Report 7174889-X (Version None)
Quarter: 2010Q4

REPORT INFORMATION
  Report Type: 
  Country: None (occurrence: None)
  Receive Date: 20101219
  Receipt Date: 20101209
  Transmission Date: 20110411
  Serious: Yes (Hospitalization)
  Sender: FDA-Public Use
  Company Number: US-BRISTOL-MYERS SQUIBB COMPANY-15435647

PATIENT
  Age: 77 Year
  Sex: Female
  Weight: 81 kg

DRUGS (21)
  1. CYTOXAN [Suspect]
     Indication: BREAST CANCER
     Dosage: RECENT DOSE 18NOV2010
     Route: 042
     Dates: start: 20100915
  2. ADRIAMYCIN PFS [Suspect]
     Indication: BREAST CANCER
     Dosage: RECENT DOSE 18NOV2010
     Route: 042
     Dates: start: 20100915
  3. WELCHOL [Concomitant]
     Indication: HYPERLIPIDAEMIA
     Route: 048
     Dates: start: 20070101
  4. POTASSIUM [Concomitant]
     Indication: HYPOKALAEMIA
     Dosage: AM
     Route: 048
     Dates: start: 20000101
  5. PROTONIX [Concomitant]
     Indication: GASTROOESOPHAGEAL REFLUX DISEASE
     Dosage: AM
     Route: 048
     Dates: start: 20020101
  6. NIASPAN [Concomitant]
     Indication: HYPERLIPIDAEMIA
     Route: 048
     Dates: start: 20070101
  7. ETODOLAC [Concomitant]
     Indication: ARTHRITIS
     Route: 048
     Dates: start: 20070101
  8. ASPIRIN [Concomitant]
     Indication: PROPHYLAXIS
     Route: 048
     Dates: start: 20050101
  9. CARVEDILOL [Concomitant]
     Indication: HYPERTENSION
     Route: 048
     Dates: start: 20040101
  10. DILTIAZEM HCL [Concomitant]
     Indication: HYPERTENSION
     Route: 048
     Dates: start: 20040101
  11. ZETIA [Concomitant]
     Indication: HYPERLIPIDAEMIA
     Route: 048
     Dates: start: 20040101
  12. HYDROCHLOROTHIAZIDE [Concomitant]
     Indication: HYPERTENSION
     Route: 048
     Dates: start: 19800101
  13. RAMIPRIL [Concomitant]
     Indication: HYPERTENSION
     Route: 048
     Dates: start: 20040101
  14. FISH OIL [Concomitant]
     Route: 048
     Dates: start: 20030101
  15. M.V.I. [Concomitant]
     Route: 048
     Dates: start: 20040101
  16. MIRALAX [Concomitant]
     Indication: CONSTIPATION
     Route: 048
     Dates: start: 20070101
  17. VICODIN [Concomitant]
     Indication: ARTHRITIS
     Dosage: 1 DF=7-11 TABS
     Route: 048
     Dates: start: 20080101
  18. EMEND [Concomitant]
     Indication: PREMEDICATION
     Dosage: 80MGORAL D2X3DY OR 3WKS 16SEP10,7OCT-8OT10,28OCT-29OCT 115MG:6OCT-06OT10,28OCT-28OCT10
     Route: 042
     Dates: start: 20100915
  19. DECADRON [Concomitant]
     Indication: PREMEDICATION
     Dosage: 8MGORAL BIDX3DY OF 21DY 15SEP10,27OT-30OT10,5OT-7OT10 10MGIV B21DYS15OCT10,6OCT-6OCT,27OT-38OT10
     Route: 042
     Dates: start: 20100915
  20. ALOXI [Concomitant]
     Indication: PREMEDICATION
     Dosage: 0.25MG:IV 6OCT10-6OCT10,28OCT-29OCT10
     Route: 042
     Dates: start: 20100915
  21. LEVAQUIN [Concomitant]
     Indication: PROPHYLAXIS
     Dosage: 27SEP10-30SEP10 12OCT10-18OCT10
     Route: 048
     Dates: start: 20100927, end: 20101018

REACTIONS (1)
  - DEHYDRATION [None]
